FAERS Safety Report 6902545-9 (Version None)
Quarter: 2010Q3

REPORT INFORMATION
  Report Type: 
  Country: None (occurrence: None)
  Receive Date: 20100730
  Receipt Date: 20100715
  Transmission Date: 20110219
  Serious: Yes (Death, Hospitalization)
  Sender: FDA-Public Use
  Company Number: 2010AC000479

PATIENT
  Age: 85 Year
  Sex: Female

DRUGS (42)
  1. DIGOXIN [Suspect]
     Indication: CARDIAC FAILURE CHRONIC
     Dosage: 0.125 MG;PO
     Route: 048
     Dates: start: 20050101, end: 20070301
  2. DIGOXIN [Suspect]
     Dosage: 0.125 MG;QD;PO
     Route: 048
     Dates: start: 20040201, end: 20050701
  3. DIGOXIN [Suspect]
     Dosage: 0.125 MG;QOD;PO
     Route: 048
     Dates: start: 20050701
  4. BUMEX [Concomitant]
  5. ISOSORBIDE [Concomitant]
  6. VITAMIN D [Concomitant]
  7. ARICEPT [Concomitant]
  8. PROTONIX [Concomitant]
  9. POTASSIUM [Concomitant]
  10. METOLAZONE [Concomitant]
  11. LEVOTHYROXINE [Concomitant]
  12. OXYBUTYNIN [Concomitant]
  13. LEXPRO [Concomitant]
  14. ALLOPURINOL [Concomitant]
  15. TOPROL-XL [Concomitant]
  16. ZYPREXA [Concomitant]
  17. SYNTHROID [Concomitant]
  18. ALLEGRO [Concomitant]
  19. DITROPAN [Concomitant]
  20. K-DUR [Concomitant]
  21. GENTAMICIN [Concomitant]
  22. ASPIRIN [Concomitant]
  23. ZYLOPRIM [Concomitant]
  24. ALTACE [Concomitant]
  25. PLAVIX [Concomitant]
  26. NIFEDIPINE [Concomitant]
  27. CEPHALEXIN [Concomitant]
  28. CIPROFLOXACIN [Concomitant]
  29. TRAMADOL HYDROCHLORIDE [Concomitant]
  30. INDOMETHACIN [Concomitant]
  31. CITALOPRAM HYDROBROMIDE [Concomitant]
  32. FUROSEMIDE [Concomitant]
  33. SENNA [Concomitant]
  34. FERROUS SULFATE [Concomitant]
  35. BETAMETHASONE [Concomitant]
  36. ZOVIRAX [Concomitant]
  37. ACETAZOLAMIDE [Concomitant]
  38. BUMETANIDE [Concomitant]
  39. PROPOXY [Concomitant]
  40. TOBRADEX [Concomitant]
  41. ZYPREXA [Concomitant]
  42. ROCEPHIN [Concomitant]

REACTIONS (39)
  - ANAEMIA [None]
  - ANHEDONIA [None]
  - ASTHENIA [None]
  - BLINDNESS UNILATERAL [None]
  - CARDIAC ARREST [None]
  - CEREBROVASCULAR ACCIDENT [None]
  - COLITIS ISCHAEMIC [None]
  - COLOUR BLINDNESS [None]
  - CONFUSIONAL STATE [None]
  - DECREASED APPETITE [None]
  - DEHYDRATION [None]
  - DEMENTIA [None]
  - DEPRESSED LEVEL OF CONSCIOUSNESS [None]
  - DIARRHOEA [None]
  - DISORIENTATION [None]
  - DIZZINESS [None]
  - ECONOMIC PROBLEM [None]
  - EYE PAIN [None]
  - FALL [None]
  - GAIT DISTURBANCE [None]
  - GASTROINTESTINAL HAEMORRHAGE [None]
  - HYPOTENSION [None]
  - HYPOVOLAEMIA [None]
  - IMPAIRED WORK ABILITY [None]
  - INJURY [None]
  - LARGE INTESTINAL ULCER [None]
  - LETHARGY [None]
  - MENTAL DISORDER [None]
  - MOBILITY DECREASED [None]
  - NAUSEA [None]
  - ONYCHOLYSIS [None]
  - ONYCHOMYCOSIS [None]
  - PAIN [None]
  - PERIPHERAL VASCULAR DISORDER [None]
  - PRURITUS [None]
  - RECTAL ULCER [None]
  - SKIN ULCER [None]
  - THERAPEUTIC AGENT TOXICITY [None]
  - VOMITING [None]
